FAERS Safety Report 5187119-5 (Version None)
Quarter: 2006Q4

REPORT INFORMATION
  Report Type: 
  Country: None (occurrence: None)
  Receive Date: 20061214
  Receipt Date: 20061130
  Transmission Date: 20070319
  Serious: Yes (Other)
  Sender: FDA-Public Use
  Company Number: 2006P1000568

PATIENT
  Age: 34 Year
  Sex: Female

DRUGS (2)
  1. NICARDIPINE HYDROCHLORIDE [Suspect]
     Indication: DRUG USE FOR UNKNOWN INDICATION
  2. SIROLIMUS (SIROLIMUS) [Suspect]

REACTIONS (3)
  - DRUG INTERACTION [None]
  - IMMUNOSUPPRESSANT DRUG LEVEL INCREASED [None]
  - LUNG DISORDER [None]
